FAERS Safety Report 8834841 (Version 4)
Quarter: 2012Q4

REPORT INFORMATION
  Report Type: 
  Country: JP (occurrence: JP)
  Receive Date: 20121010
  Receipt Date: 20121227
  Transmission Date: 20130627
  Serious: Yes (Death, Hospitalization)
  Sender: FDA-Public Use
  Company Number: JP-GLAXOSMITHKLINE-B0836587A

PATIENT
  Age: 45 Year
  Sex: Female
  Weight: 55 kg

DRUGS (2)
  1. HYCAMTIN [Suspect]
     Indication: OVARIAN CANCER RECURRENT
     Dosage: 1.25MGM2 per day
     Route: 042
     Dates: start: 20120802, end: 20120806
  2. HYCAMTIN [Suspect]
     Indication: OVARIAN CANCER RECURRENT
     Dosage: 1.25MGM2 per day
     Route: 042
     Dates: start: 20120918, end: 20120922

REACTIONS (9)
  - Nausea [Unknown]
  - Decreased appetite [Unknown]
  - White blood cell count decreased [Unknown]
  - Neutrophil count decreased [Unknown]
  - Red blood cell count decreased [Unknown]
  - Anaemia [Unknown]
  - Platelet count decreased [Unknown]
  - Condition aggravated [Fatal]
  - Toxicity to various agents [Fatal]
